FAERS Safety Report 15857800 (Version 13)
Quarter: 2020Q2

REPORT INFORMATION
  Report Type: Report from Study
  Country: AR (occurrence: AR)
  Receive Date: 20190123
  Receipt Date: 20200629
  Transmission Date: 20200713
  Serious: Yes (Hospitalization, Other)
  Sender: FDA-Public Use
  Company Number: AR-ACTELION-A-CH2019-184957

PATIENT
  Age: 68 Year
  Sex: Female
  Weight: 58 kg

DRUGS (3)
  1. INFLUENZA VACCINE [Concomitant]
     Active Substance: INFLUENZA VIRUS VACCINE
  2. OPSUMIT [Suspect]
     Active Substance: MACITENTAN
     Indication: PULMONARY ARTERIAL HYPERTENSION
     Dosage: 10 MG, QD
     Route: 048
     Dates: start: 20161201
  3. SILDENAFIL. [Concomitant]
     Active Substance: SILDENAFIL

REACTIONS (17)
  - Infection [Unknown]
  - Catheterisation cardiac [Unknown]
  - Fall [Unknown]
  - Pain in extremity [Unknown]
  - Device related infection [Unknown]
  - Abdominal pain upper [Unknown]
  - Vomiting [Unknown]
  - Osteomyelitis chronic [Recovering/Resolving]
  - Nasal congestion [Unknown]
  - Headache [Recovering/Resolving]
  - Malaise [Unknown]
  - Blood test abnormal [Unknown]
  - Dizziness [Recovering/Resolving]
  - Lacrimation decreased [Unknown]
  - Abdominal distension [Unknown]
  - Postoperative wound infection [Unknown]
  - Contusion [Unknown]

NARRATIVE: CASE EVENT DATE: 20191107
